FAERS Safety Report 15214429 (Version 1)
Quarter: 2018Q3

REPORT INFORMATION
  Report Type: Spontaneous
  Country: US (occurrence: US)
  Receive Date: 20180730
  Receipt Date: 20180730
  Transmission Date: 20181010
  Serious: Yes (Hospitalization, Other)
  Sender: FDA-Public Use
  Company Number: US-BEH-2018093140

PATIENT
  Age: 81 Year
  Sex: Female
  Weight: 81.18 kg

DRUGS (12)
  1. TRAMADOL. [Concomitant]
     Active Substance: TRAMADOL
  2. NORMAL SALINE [Concomitant]
     Active Substance: SODIUM CHLORIDE
  3. EXCEDRIN EXTRA STRENGTH [Concomitant]
     Active Substance: ACETAMINOPHEN\ASPIRIN\CAFFEINE
  4. HIZENTRA [Suspect]
     Active Substance: HUMAN IMMUNOGLOBULIN G
     Indication: IMMUNODEFICIENCY COMMON VARIABLE
     Dosage: UNK
     Route: 058
  5. MULTIVITAMIN                       /00097801/ [Concomitant]
     Active Substance: VITAMINS
  6. SIMVASTATIN. [Concomitant]
     Active Substance: SIMVASTATIN
  7. HIZENTRA [Suspect]
     Active Substance: HUMAN IMMUNOGLOBULIN G
     Dosage: UNK
     Route: 058
  8. HIZENTRA [Suspect]
     Active Substance: HUMAN IMMUNOGLOBULIN G
     Dosage: 5 G, QW
     Route: 058
     Dates: start: 20100602
  9. EPINEPHRINE. [Concomitant]
     Active Substance: EPINEPHRINE
  10. CARVEDILOL. [Concomitant]
     Active Substance: CARVEDILOL
  11. DIPHENHYDRAMINE. [Concomitant]
     Active Substance: DIPHENHYDRAMINE
  12. PROAIR HFA [Concomitant]
     Active Substance: ALBUTEROL SULFATE

REACTIONS (1)
  - Bladder cancer [Recovered/Resolved]

NARRATIVE: CASE EVENT DATE: 20180716
